FAERS Safety Report 9663874 (Version 2)
Quarter: 2013Q4

REPORT INFORMATION
  Report Type: Spontaneous
  Country: FR (occurrence: FR)
  Receive Date: 20131101
  Receipt Date: 20131101
  Transmission Date: 20140711
  Serious: Yes (Other)
  Sender: FDA-Public Use
  Company Number: FR-ASTELLAS-2013EU007827

PATIENT
  Age: 91 Year
  Sex: Female
  Weight: 46 kg

DRUGS (5)
  1. VESICARE [Suspect]
     Dosage: 1 DF, UID/QD
     Route: 048
     Dates: start: 201309
  2. LAROXYL [Concomitant]
     Indication: PAIN PROPHYLAXIS
     Dosage: 8 DROPS, UID/QD
     Route: 048
     Dates: start: 201308, end: 201310
  3. STABLON [Concomitant]
     Indication: DEPRESSION
     Dosage: 1 DF, TID
     Route: 048
     Dates: start: 201302, end: 201310
  4. NORSET [Concomitant]
     Indication: DEPRESSION
     Dosage: 1 DF, UID/QD
     Route: 048
     Dates: start: 201309
  5. DAFALGAN [Concomitant]
     Indication: PAIN
     Dosage: 1 DF, UID/QD
     Route: 048
     Dates: start: 201304

REACTIONS (2)
  - Orthostatic hypotension [Not Recovered/Not Resolved]
  - Fall [Not Recovered/Not Resolved]
